FAERS Safety Report 7869922-3 (Version None)
Quarter: 2011Q4

REPORT INFORMATION
  Report Type: 
  Country: None (occurrence: None)
  Receive Date: 20111028
  Receipt Date: 20110111
  Transmission Date: 20120403
  Serious: No
  Sender: FDA-Public Use
  Company Number: US-AMGEN-KDL425836

PATIENT
  Age: 56 Year
  Sex: Male

DRUGS (1)
  1. ENBREL [Suspect]
     Indication: PSORIATIC ARTHROPATHY
     Dosage: 50 MG, QWK
     Route: 058
     Dates: start: 20090113

REACTIONS (7)
  - GAIT DISTURBANCE [None]
  - HYPERKERATOSIS [None]
  - BUNION [None]
  - PAIN IN EXTREMITY [None]
  - TOOTH FRACTURE [None]
  - TOOTH DISORDER [None]
  - INGROWING NAIL [None]
